FAERS Safety Report 7626592-7 (Version None)
Quarter: 2011Q3

REPORT INFORMATION
  Report Type: 
  Country: None (occurrence: None)
  Receive Date: 20110721
  Receipt Date: 20110713
  Transmission Date: 20111222
  Serious: Yes (Hospitalization)
  Sender: FDA-Public Use
  Company Number: IL-GLAXOSMITHKLINE-B0733776A

PATIENT
  Age: 73 Year
  Sex: Female

DRUGS (8)
  1. SPIRONOLACTONE [Concomitant]
     Route: 065
  2. CARBIDOPA + LEVODOPA [Concomitant]
     Route: 065
  3. POTASSIUM CHLORIDE [Concomitant]
     Route: 065
  4. RAMIPRIL [Concomitant]
     Route: 065
  5. ALBUTEROL [Suspect]
     Route: 055
  6. LEVOTHYROXINE SODIUM [Concomitant]
     Route: 065
  7. SALMETEROL/FLUTICASONE PROPIONATE 50/500UG [Concomitant]
     Route: 065
  8. RISEDRONATE SODIUM [Concomitant]
     Route: 065

REACTIONS (7)
  - OVERDOSE [None]
  - TACHYCARDIA [None]
  - TREMOR [None]
  - BLOOD POTASSIUM DECREASED [None]
  - FATIGUE [None]
  - HYPOCALCAEMIA [None]
  - BLOOD POTASSIUM INCREASED [None]
